FAERS Safety Report 5007371-6 (Version None)
Quarter: 2006Q2

REPORT INFORMATION
  Report Type: 
  Country: None (occurrence: None)
  Receive Date: 20060518
  Receipt Date: 20060518
  Transmission Date: 20061013
  Serious: Yes (Other)
  Sender: FDA-Public Use
  Company Number: None

PATIENT
  Sex: Male
  Weight: 71.6683 kg

DRUGS (1)
  1. COMPOUND BENZOIN TINCTURE  3M HEALTH CARE [Suspect]
     Indication: WOUND CLOSURE
     Dosage: .6 ML 1 TIME TOP
     Route: 061
     Dates: start: 20060428

REACTIONS (2)
  - APPLICATION SITE VESICLES [None]
  - POSTOPERATIVE WOUND COMPLICATION [None]
